FAERS Safety Report 23248910 (Version 3)
Quarter: 2024Q1

REPORT INFORMATION
  Report Type: Report from Study
  Country: US (occurrence: US)
  Receive Date: 20231201
  Receipt Date: 20240206
  Transmission Date: 20240410
  Serious: Yes (Death)
  Sender: FDA-Public Use
  Company Number: US-002147023-NVSC2023US255103

PATIENT
  Sex: Male

DRUGS (3)
  1. ENTRESTO [Suspect]
     Active Substance: SACUBITRIL\VALSARTAN
     Indication: Cardiac failure chronic
     Dosage: 1 DOSAGE FORM, QD (SACUBITRIL 49 MG/ VALSARTAN 51 MG)
     Route: 048
  2. ENTRESTO [Suspect]
     Active Substance: SACUBITRIL\VALSARTAN
     Dosage: 1 DOSAGE FORM, QD (SACUBITRIL 26 MG/ VALSARTAN 24 MG)
     Route: 048
     Dates: start: 20200420, end: 20200717
  3. ENTRESTO [Suspect]
     Active Substance: SACUBITRIL\VALSARTAN
     Dosage: 1 DOSAGE FORM, QD (SACUBITRIL 49 MG/ VALSARTAN 51 MG)
     Route: 048
     Dates: start: 20200717

REACTIONS (3)
  - Myocardial infarction [Fatal]
  - Pulmonary embolism [Fatal]
  - Inappropriate schedule of product administration [Unknown]
